FAERS Safety Report 17728641 (Version 3)
Quarter: 2020Q2

REPORT INFORMATION
  Report Type: Report from Study
  Country: US (occurrence: US)
  Receive Date: 20200430
  Receipt Date: 20200618
  Transmission Date: 20200714
  Serious: Yes (Other)
  Sender: FDA-Public Use
  Company Number: US-BRISTOL-MYERS SQUIBB COMPANY-BMS-2020-033773

PATIENT
  Age: 72 Year
  Sex: Male
  Weight: 122.47 kg

DRUGS (7)
  1. LISINOPRIL. [Concomitant]
     Active Substance: LISINOPRIL
     Indication: PRODUCT USED FOR UNKNOWN INDICATION
     Dosage: UNK
     Route: 065
  2. NIVOLUMAB [Suspect]
     Active Substance: NIVOLUMAB
     Indication: MALIGNANT MELANOMA
     Dosage: 240 MILLIGRAM, QMO
     Route: 042
     Dates: start: 20200315, end: 20200415
  3. OMEPRAZOLE. [Concomitant]
     Active Substance: OMEPRAZOLE
     Indication: PRODUCT USED FOR UNKNOWN INDICATION
     Dosage: UNK, MORNING
     Route: 065
  4. ATORVASTATIN [Concomitant]
     Active Substance: ATORVASTATIN
     Indication: PRODUCT USED FOR UNKNOWN INDICATION
     Dosage: UNK
     Route: 065
  5. EMPAGLIFLOZIN [Concomitant]
     Active Substance: EMPAGLIFLOZIN
     Indication: PRODUCT USED FOR UNKNOWN INDICATION
     Dosage: 25 MILLIGRAM
     Route: 065
  6. METFORMIN [Concomitant]
     Active Substance: METFORMIN HYDROCHLORIDE
     Indication: PRODUCT USED FOR UNKNOWN INDICATION
     Dosage: 500 MILLIGRAM, BID
     Route: 065
  7. CHOLESTEROL [Concomitant]
     Active Substance: CHOLESTEROL
     Indication: PRODUCT USED FOR UNKNOWN INDICATION
     Dosage: UNK UNK, QD
     Route: 065

REACTIONS (27)
  - Gait disturbance [Unknown]
  - Malaise [Unknown]
  - Fatigue [Unknown]
  - Depressed mood [Unknown]
  - Blood test abnormal [Unknown]
  - Renal pain [Unknown]
  - Post-traumatic stress disorder [Unknown]
  - Diabetes mellitus inadequate control [Unknown]
  - Chromaturia [Unknown]
  - Wrong technique in product usage process [Unknown]
  - Hepatic pain [Unknown]
  - Flank pain [Recovered/Resolved]
  - Blood urine present [Unknown]
  - Dizziness [Unknown]
  - Renal disorder [Unknown]
  - Thermal burn [Unknown]
  - Urine analysis abnormal [Recovered/Resolved]
  - Burning sensation [Unknown]
  - Back pain [Unknown]
  - Fall [Unknown]
  - Anal haemorrhage [Unknown]
  - Off label use [Unknown]
  - Night sweats [Unknown]
  - Rectal haemorrhage [Unknown]
  - Haemorrhoids [Unknown]
  - Confusional state [Unknown]
  - Somnolence [Unknown]

NARRATIVE: CASE EVENT DATE: 20200415
